FAERS Safety Report 15533588 (Version 2)
Quarter: 2018Q4

REPORT INFORMATION
  Report Type: Spontaneous
  Country: US (occurrence: US)
  Receive Date: 20181019
  Receipt Date: 20181227
  Transmission Date: 20190205
  Serious: No
  Sender: FDA-Public Use
  Company Number: US-SA-2018SA286782

PATIENT
  Age: 51 Year
  Sex: Female
  Weight: 63 kg

DRUGS (1)
  1. PRALUENT [Suspect]
     Active Substance: ALIROCUMAB
     Indication: HYPERLIPIDAEMIA
     Dosage: 150 MG, 1X
     Route: 058
     Dates: start: 20181008, end: 20181008

REACTIONS (4)
  - Tenderness [Unknown]
  - Breast tenderness [Unknown]
  - Myalgia [Unknown]
  - Constipation [Unknown]
